FAERS Safety Report 10208710 (Version 3)
Quarter: 2015Q1

REPORT INFORMATION
  Report Type: Spontaneous
  Country: US (occurrence: US)
  Receive Date: 20140530
  Receipt Date: 20150327
  Transmission Date: 20150720
  Serious: Yes (Hospitalization, Disabling, Other)
  Sender: FDA-Public Use
  Company Number: US-009507513-1405USA014824

PATIENT
  Sex: Male

DRUGS (2)
  1. PROSCAR [Suspect]
     Active Substance: FINASTERIDE
     Indication: BENIGN PROSTATIC HYPERPLASIA
     Dosage: 5 MG, UNK
     Route: 048
  2. FINASTERIDE. [Suspect]
     Active Substance: FINASTERIDE
     Indication: DYSURIA
     Dosage: UNK
     Route: 048
     Dates: start: 20140821

REACTIONS (22)
  - Rotator cuff repair [Unknown]
  - Gout [Unknown]
  - Arthroscopic surgery [Unknown]
  - Erectile dysfunction [Unknown]
  - Lung disorder [Unknown]
  - Psoriatic arthropathy [Unknown]
  - Atrial fibrillation [Unknown]
  - Hyperlipidaemia [Unknown]
  - Cerebrovascular accident [Recovering/Resolving]
  - Loss of libido [Unknown]
  - Sleep apnoea syndrome [Unknown]
  - Penile prosthesis insertion [Unknown]
  - Back pain [Unknown]
  - Genital disorder male [Unknown]
  - Anxiety [Not Recovered/Not Resolved]
  - Hypertension [Unknown]
  - Diabetes mellitus [Unknown]
  - Depression [Not Recovered/Not Resolved]
  - Prostatic pain [Unknown]
  - Nocturia [Unknown]
  - Erectile dysfunction [Not Recovered/Not Resolved]
  - Sexual dysfunction [Not Recovered/Not Resolved]

NARRATIVE: CASE EVENT DATE: 19971204
